FAERS Safety Report 9117404 (Version 1)
Quarter: 2013Q1

REPORT INFORMATION
  Report Type: Spontaneous
  Country: US (occurrence: US)
  Receive Date: 20130225
  Receipt Date: 20130225
  Transmission Date: 20140127
  Serious: Yes (Other)
  Sender: FDA-Public Use
  Company Number: US-RB-050213-13

PATIENT
  Sex: Male

DRUGS (2)
  1. MUCINEX DM MAXIMUM STRENGTH (GUAIFENESIN) [Suspect]
     Indication: DRUG ABUSE
     Dosage: DRUG STARTED ON 10-FEB-2013. AS AS MANY AS TEN TABLETS IN 4-5 HOURS.
     Route: 048
  2. MUCINEX DM MAXIMUM STRENGTH (DEXTROMETHORPHAN HYDROBROMIDE) [Suspect]

REACTIONS (3)
  - Drug abuse [Unknown]
  - Syncope [Recovered/Resolved]
  - Vomiting [Unknown]
